FAERS Safety Report 4884917-X (Version None)
Quarter: 2006Q1

REPORT INFORMATION
  Report Type: 
  Country: None (occurrence: None)
  Receive Date: 20060117
  Receipt Date: 20060104
  Transmission Date: 20060701
  Serious: Yes (Other)
  Sender: FDA-Public Use
  Company Number: 2006BH000392

PATIENT

DRUGS (1)
  1. FENTANYL CITRATE [Suspect]
     Dosage: 50 MG/ML;

REACTIONS (2)
  - HYPOTENSION [None]
  - INCORRECT DOSE ADMINISTERED [None]
